FAERS Safety Report 11369994 (Version 1)
Quarter: 2015Q3

REPORT INFORMATION
  Report Type: Spontaneous
  Country: US (occurrence: US)
  Receive Date: 20150812
  Receipt Date: 20150812
  Transmission Date: 20151125
  Serious: No
  Sender: FDA-Public Use
  Company Number: US-JNJFOC-20150803848

PATIENT
  Age: 42 Year
  Sex: Female

DRUGS (1)
  1. INVOKAMET [Suspect]
     Active Substance: CANAGLIFLOZIN\METFORMIN HYDROCHLORIDE
     Indication: TYPE 2 DIABETES MELLITUS
     Dosage: DOSE - 50/500 MG
     Route: 048
     Dates: start: 201505, end: 20150806

REACTIONS (2)
  - Incorrect dose administered [Unknown]
  - Genital infection fungal [Unknown]
